FAERS Safety Report 19053196 (Version 3)
Quarter: 2021Q1

REPORT INFORMATION
  Report Type: Spontaneous
  Country: US (occurrence: US)
  Receive Date: 20210324
  Receipt Date: 20210330
  Transmission Date: 20210420
  Serious: Yes (Other)
  Sender: FDA-Public Use
  Company Number: US-ELI_LILLY_AND_COMPANY-US201011003454

PATIENT
  Sex: Male

DRUGS (9)
  1. HUMULIN R [Suspect]
     Active Substance: INSULIN HUMAN
     Dosage: 64 U, PRN
     Route: 058
  2. HUMULIN R [Suspect]
     Active Substance: INSULIN HUMAN
     Dosage: 64 U, PRN
     Route: 058
  3. HUMULIN R [Suspect]
     Active Substance: INSULIN HUMAN
     Dosage: UNK UNK, UNKNOWN
  4. HUMULIN N [Suspect]
     Active Substance: INSULIN HUMAN
     Dosage: UNK UNK, UNKNOWN
     Route: 058
  5. HUMULIN N [Suspect]
     Active Substance: INSULIN HUMAN
     Indication: DIABETES MELLITUS
     Dosage: UNK UNK, UNKNOWN
     Route: 058
     Dates: start: 1989
  6. HUMULIN R [Suspect]
     Active Substance: INSULIN HUMAN
     Indication: DIABETES MELLITUS
     Dosage: 64 U, PRN
     Route: 058
     Dates: start: 1989
  7. HUMULIN R [Suspect]
     Active Substance: INSULIN HUMAN
     Dosage: 64 U, PRN
     Route: 058
  8. LEVOTHYROXINE. [Concomitant]
     Active Substance: LEVOTHYROXINE
     Indication: PRODUCT USED FOR UNKNOWN INDICATION
     Dosage: 150 MG, UNKNOWN
  9. CHLOROTHIAZIDE. [Suspect]
     Active Substance: CHLOROTHIAZIDE
     Indication: KIDNEY INFECTION
     Dosage: 25 MG, UNKNOWN
     Route: 065

REACTIONS (23)
  - Vein disorder [Not Recovered/Not Resolved]
  - Hypertension [Unknown]
  - Mobility decreased [Not Recovered/Not Resolved]
  - Eye infection staphylococcal [Not Recovered/Not Resolved]
  - Arthropathy [Not Recovered/Not Resolved]
  - Blood pressure increased [Unknown]
  - Upper limb fracture [Unknown]
  - Musculoskeletal discomfort [Not Recovered/Not Resolved]
  - Product storage error [Not Recovered/Not Resolved]
  - Expired product administered [Unknown]
  - Drug ineffective [Unknown]
  - Fall [Unknown]
  - Staphylococcal infection [Not Recovered/Not Resolved]
  - Visual impairment [Not Recovered/Not Resolved]
  - Deafness unilateral [Not Recovered/Not Resolved]
  - Kidney infection [Not Recovered/Not Resolved]
  - Skin exfoliation [Not Recovered/Not Resolved]
  - Blood glucose abnormal [Unknown]
  - Cerebrovascular accident [Not Recovered/Not Resolved]
  - Lower limb fracture [Unknown]
  - Thermal burn [Unknown]
  - Limb discomfort [Not Recovered/Not Resolved]
  - Blood glucose increased [Unknown]

NARRATIVE: CASE EVENT DATE: 2017
